FAERS Safety Report 21445877 (Version 1)
Quarter: 2022Q4

REPORT INFORMATION
  Report Type: Spontaneous
  Country: GB (occurrence: GB)
  Receive Date: 20221012
  Receipt Date: 20221012
  Transmission Date: 20230112
  Serious: Yes (Disabling, Other)
  Sender: FDA-Public Use
  Company Number: None

PATIENT
  Age: 75 Year
  Sex: Male
  Weight: 80 kg

DRUGS (16)
  1. CIPROFLOXACIN [Suspect]
     Active Substance: CIPROFLOXACIN
     Indication: Product used for unknown indication
     Dosage: 500 MILLIGRAM, BID, (TAKE ONE TWICE DAILY FOR 5 DAYS )
     Route: 065
     Dates: start: 20221003
  2. AMITRIPTYLINE HYDROCHLORIDE [Concomitant]
     Active Substance: AMITRIPTYLINE HYDROCHLORIDE
     Dosage: 1 DOSAGE FORM, HS, (TAKE ONE AT NIGHT)
     Route: 065
     Dates: start: 20220826, end: 20220923
  3. ATENOLOL [Concomitant]
     Active Substance: ATENOLOL
     Dosage: 1 DOSAGE FORM, AM, (TAKE ONE EACH MORNING)
     Route: 065
     Dates: start: 20220328
  4. ATORVASTATIN [Concomitant]
     Active Substance: ATORVASTATIN
     Dosage: 1 DOSAGE FORM, QD, (TAKE ONE DAILY )
     Route: 065
     Dates: start: 20210820
  5. CLOBETASONE BUTYRATE [Concomitant]
     Active Substance: CLOBETASONE BUTYRATE
     Dosage: 1 DOSAGE FORM, BID (APPLY 2 TIMES/DAY  )
     Route: 065
     Dates: start: 20220906, end: 20220913
  6. COCODAMOL [Concomitant]
     Active Substance: ACETAMINOPHEN\CODEINE PHOSPHATE
     Dosage: 2 DOSAGE FORM, QID, (TAKE 1 OR 2 4 TIMES/DAY)
     Route: 065
     Dates: start: 20220922, end: 20220928
  7. DOXYCYCLINE [Concomitant]
     Active Substance: DOXYCYCLINE
     Dosage: 2 DOSAGE FORM, QD, (TAKE TWO CAPSULES ON DAY 1. THEN TAKE ONE CAPSU)
     Route: 065
     Dates: start: 20220922, end: 20220929
  8. ENALAPRIL [Concomitant]
     Active Substance: ENALAPRIL
     Dosage: 1 DOSAGE FORM, QD, (TAKE ONE DAILY)
     Route: 065
     Dates: start: 20220523
  9. FYBOGEL [Concomitant]
     Active Substance: HERBALS\PLANTAGO OVATA SEED
     Dosage: 1 DOSAGE FORM, QD, (1 SACHET 1-2 TIMES DAILY)
     Route: 065
     Dates: start: 20220902
  10. NITROGLYCERIN [Concomitant]
     Active Substance: NITROGLYCERIN
     Dosage: 1 DOSAGE FORM, PRN, (ONE PUFF AS NEEDED)
     Route: 065
     Dates: start: 20220201
  11. LANSOPRAZOLE [Concomitant]
     Active Substance: LANSOPRAZOLE
     Dosage: 2 DOSAGE FORM, QD, (TAKE ONE- TWO ONCE DAILY)
     Route: 065
     Dates: start: 20220420, end: 20220922
  12. POLYETHYLENE GLYCOL 3350\POTASSIUM CHLORIDE\SODIUM BICARBONATE\SODIUM [Concomitant]
     Active Substance: POLYETHYLENE GLYCOL 3350\POTASSIUM CHLORIDE\SODIUM BICARBONATE\SODIUM CHLORIDE
     Dosage: 2 DOSAGE FORM, QD, (TAKE 1-2 SACHETS DAILY )
     Route: 065
     Dates: start: 20210827, end: 20220819
  13. MEBEVERINE HYDROCHLORIDE [Concomitant]
     Active Substance: MEBEVERINE HYDROCHLORIDE
     Dosage: 1 DOSAGE FORM, TID, (TAKE ONE 3 TIMES/DAY, PREFERABLY 20 MINUTES BEFORE FOOD
     Route: 065
     Dates: start: 20220906
  14. OTOMIZE [Concomitant]
     Dosage: 1 DOSAGE FORM, TID, (APPLY 1 SPRAY INTO THE AFFECTED EAR(S) THREE TIMES A DAY)
     Route: 065
     Dates: start: 20220808, end: 20220815
  15. ACETAMINOPHEN [Concomitant]
     Active Substance: ACETAMINOPHEN
     Dosage: 2 DOSAGE FORM, QID, (TAKE 1 OR 2 4 TIMES/DAY)
     Route: 065
     Dates: start: 20211202, end: 20220819
  16. ROZEX (METRONIDAZOLE) [Concomitant]
     Active Substance: METRONIDAZOLE
     Dosage: 1 DOSAGE FORM, BID, (APPLY TWICE DAILY)
     Route: 065
     Dates: start: 20220929

REACTIONS (3)
  - Peripheral swelling [Unknown]
  - Tendon disorder [Recovering/Resolving]
  - Pain in extremity [Unknown]

NARRATIVE: CASE EVENT DATE: 20221003
